FAERS Safety Report 5927684-0 (Version None)
Quarter: 2008Q4

REPORT INFORMATION
  Report Type: 
  Country: None (occurrence: None)
  Receive Date: 20081023
  Receipt Date: 20081023
  Transmission Date: 20090506
  Serious: Yes (Other)
  Sender: FDA-Public Use
  Company Number: US-ABBOTT-08P-163-0479413-00

PATIENT
  Sex: Male
  Weight: 94.886 kg

DRUGS (4)
  1. HUMIRA [Suspect]
     Indication: RHEUMATOID ARTHRITIS
     Route: 058
     Dates: start: 20061101, end: 20080201
  2. HUMIRA [Suspect]
     Route: 058
     Dates: start: 20080301
  3. METHOTREXATE [Concomitant]
     Indication: RHEUMATOID ARTHRITIS
     Route: 048
     Dates: start: 19970101
  4. PREDNISONE TAB [Concomitant]
     Indication: STEROID THERAPY
     Route: 048
     Dates: start: 19970101

REACTIONS (4)
  - ARTHRALGIA [None]
  - HAEMORRHOIDS [None]
  - PRURITUS [None]
  - SKIN DISCOLOURATION [None]
